FAERS Safety Report 9571455 (Version 1)
Quarter: 2013Q3

REPORT INFORMATION
  Report Type: Spontaneous
  Country: US (occurrence: None)
  Receive Date: 20130927
  Receipt Date: 20130927
  Transmission Date: 20140515
  Serious: Yes (Other)
  Sender: FDA-Public Use
  Company Number: None

PATIENT
  Age: 36 Year
  Sex: Female
  Weight: 63.5 kg

DRUGS (4)
  1. CLARITIN [Suspect]
     Dosage: 1 PILL, 1 A DAY BY MOUTH
     Route: 048
  2. ZYRTEC [Concomitant]
  3. SUDAFED [Concomitant]
  4. D3 [Concomitant]

REACTIONS (1)
  - Memory impairment [None]
